FAERS Safety Report 22305786 (Version 2)
Quarter: 2023Q2

REPORT INFORMATION
  Report Type: Spontaneous
  Country: DE (occurrence: DE)
  Receive Date: 20230511
  Receipt Date: 20230604
  Transmission Date: 20230722
  Serious: Yes (Other)
  Sender: FDA-Public Use
  Company Number: DE-BRISTOL-MYERS SQUIBB COMPANY-2023-048141

PATIENT
  Age: 76 Year
  Sex: Male

DRUGS (22)
  1. OPDIVO [Suspect]
     Active Substance: NIVOLUMAB
     Indication: Metastatic renal cell carcinoma
     Dosage: UNTIL MAR-2021: 4 CYCLES OF NIVO/ IPI?UNTIL JAN-2023: 22 CYCLES OF NIVO MONO
     Route: 042
     Dates: start: 20201228, end: 202301
  2. OPDIVO [Suspect]
     Active Substance: NIVOLUMAB
     Dosage: UNTIL MAY/2021 : 2 CYCLES NIVOLUMAB 480 MG MONO
     Route: 042
  3. OPDIVO [Suspect]
     Active Substance: NIVOLUMAB
     Dosage: CONTINUATION OF IMMUNOTHERAPY WITH NIVOLUMAB (3RD DOSE).
     Route: 042
     Dates: start: 202106
  4. OPDIVO [Suspect]
     Active Substance: NIVOLUMAB
     Dosage: CONTINUATION OF THERAPY UNTIL 14TH DOSE WITH INCONSPICUOUS RE-STAGING OCT-2021 AND JAN-2022
     Route: 042
     Dates: start: 202107, end: 202204
  5. OPDIVO [Suspect]
     Active Substance: NIVOLUMAB
     Dosage: CONTINUATION
     Route: 042
     Dates: start: 202206
  6. OPDIVO [Suspect]
     Active Substance: NIVOLUMAB
     Dosage: UNTIL MAY/2021 : 2 CYCLES NIVOLUMAB 480 MG MONO
     Route: 042
  7. OPDIVO [Suspect]
     Active Substance: NIVOLUMAB
     Dosage: CONTINUATION OF THERAPY UNTIL 14TH DOSE WITH INCONSPICUOUS RE-STAGING OCT-2021 AND JAN-2022
     Route: 042
     Dates: end: 20210303
  8. OPDIVO [Suspect]
     Active Substance: NIVOLUMAB
     Route: 042
     Dates: start: 20210409, end: 20230106
  9. YERVOY [Suspect]
     Active Substance: IPILIMUMAB
     Indication: Renal cell carcinoma
     Dosage: UNTIL MAR-2021: 4 CYCLES OF NIVO/ IPI
     Route: 042
     Dates: start: 20201228
  10. YERVOY [Suspect]
     Active Substance: IPILIMUMAB
     Dosage: CONTINUATION OF IMMUNOTHERAPY WITH NIVOLUMAB (3RD DOSE).
     Route: 042
     Dates: start: 202106
  11. YERVOY [Suspect]
     Active Substance: IPILIMUMAB
     Dosage: CONTINUATION OF THERAPY UNTIL 14TH DOSE WITH INCONSPICUOUS RE-STAGING OCT-2021 AND JAN-2022
     Route: 042
     Dates: start: 202107, end: 202204
  12. YERVOY [Suspect]
     Active Substance: IPILIMUMAB
     Dosage: CONTINUATION
     Route: 042
     Dates: start: 202206
  13. YERVOY [Suspect]
     Active Substance: IPILIMUMAB
     Dosage: CONTINUATION?84 MILLIGRAM (S)/ KILOGRAM (MG/KG)
     Route: 042
     Dates: end: 20210303
  14. EUTHYROX [Concomitant]
     Active Substance: LEVOTHYROXINE SODIUM
     Indication: Product used for unknown indication
     Dosage: 150 MICROGRAM
  15. ENALAPRIL [Concomitant]
     Active Substance: ENALAPRIL
     Indication: Product used for unknown indication
     Dosage: 10 MILLIGRAM PER GRAM
  16. ALLOPURINOL [Concomitant]
     Active Substance: ALLOPURINOL
     Indication: Product used for unknown indication
     Dosage: 200 MILLIGRAM PER GRAM
  17. FLECAINIDE ACETATE [Concomitant]
     Active Substance: FLECAINIDE ACETATE
     Indication: Product used for unknown indication
     Dosage: 10 MILLIGRAM PER GRAM
  18. ASPIRIN [Concomitant]
     Active Substance: ASPIRIN
     Indication: Product used for unknown indication
     Dosage: 100 MILLIGRAM PER GRAM
  19. SODIUM BICARBONATE [Concomitant]
     Active Substance: SODIUM BICARBONATE
     Indication: Product used for unknown indication
  20. ERGOCALCIFEROL [Concomitant]
     Active Substance: ERGOCALCIFEROL
     Indication: Product used for unknown indication
     Dosage: 1000 INTERNATIONAL UNIT (S) (IU)
  21. AMLODIPINE [Concomitant]
     Active Substance: AMLODIPINE BESYLATE
     Indication: Product used for unknown indication
     Dosage: 1000 INTERNATIONAL UNIT (S) (IU)
  22. AMINO ACIDS, SOURCE UNSPECIFIED [Concomitant]
     Active Substance: AMINO ACIDS, SOURCE UNSPECIFIED
     Indication: Product used for unknown indication
     Dosage: 1000 INTERNATIONAL UNIT (S)

REACTIONS (3)
  - Immune-mediated nephritis [Recovering/Resolving]
  - Pneumonitis [Recovered/Resolved]
  - COVID-19 [Recovered/Resolved]

NARRATIVE: CASE EVENT DATE: 20210501
